FAERS Safety Report 6803337-1 (Version None)
Quarter: 2010Q2

REPORT INFORMATION
  Report Type: 
  Country: None (occurrence: None)
  Receive Date: 20100628
  Receipt Date: 20100618
  Transmission Date: 20101027
  Serious: Yes (Hospitalization, Other)
  Sender: FDA-Public Use
  Company Number: US-ROCHE-699894

PATIENT
  Sex: Male

DRUGS (1)
  1. ACTEMRA [Suspect]
     Indication: RHEUMATOID ARTHRITIS
     Dosage: FORM: INFUSION
     Route: 065
     Dates: start: 20100323

REACTIONS (7)
  - DIVERTICULITIS [None]
  - EXTRADURAL ABSCESS [None]
  - GASTROINTESTINAL PERFORATION [None]
  - PORTAL VEIN THROMBOSIS [None]
  - RENAL VESSEL DISORDER [None]
  - SEPSIS [None]
  - TRANSAMINASES INCREASED [None]
